FAERS Safety Report 24269282 (Version 2)
Quarter: 2024Q3

REPORT INFORMATION
  Report Type: Spontaneous
  Country: US (occurrence: US)
  Receive Date: 20240830
  Receipt Date: 20240907
  Transmission Date: 20241016
  Serious: Yes (Other)
  Sender: AIMMUNE
  Company Number: US-ZENPEP LLC-2024AIMT01265

PATIENT

DRUGS (2)
  1. ZENPEP [Suspect]
     Active Substance: PANCRELIPASE AMYLASE\PANCRELIPASE LIPASE\PANCRELIPASE PROTEASE
     Indication: Pancreatic failure
     Dosage: TWO CAPSULES WITH EVERY MEAL
     Route: 048
     Dates: start: 2022, end: 2022
  2. ZENPEP [Suspect]
     Active Substance: PANCRELIPASE AMYLASE\PANCRELIPASE LIPASE\PANCRELIPASE PROTEASE
     Dosage: TWO CAPSULES, ONCE, DOSE DURING THE EVENT
     Route: 048
     Dates: start: 2022, end: 2022

REACTIONS (2)
  - Choking [Recovered/Resolved]
  - Dysphagia [Recovered/Resolved]

NARRATIVE: CASE EVENT DATE: 20220101
